FAERS Safety Report 7333646-1 (Version None)
Quarter: 2011Q1

REPORT INFORMATION
  Report Type: 
  Country: None (occurrence: None)
  Receive Date: 20110306
  Receipt Date: 20110221
  Transmission Date: 20110831
  Serious: Yes (Hospitalization, Other)
  Sender: FDA-Public Use
  Company Number: US-ELI_LILLY_AND_COMPANY-US201102005809

PATIENT
  Age: 74 Year
  Sex: Female

DRUGS (12)
  1. FERROUS SULFATE TAB [Concomitant]
  2. CASTOR OIL [Concomitant]
  3. IBUPROFEN [Concomitant]
  4. ALBUTEROL [Concomitant]
  5. OXYGEN [Concomitant]
  6. CALCIUM [Concomitant]
  7. FORTEO [Suspect]
     Indication: BONE DISORDER
     Dosage: UNK, UNK
  8. OMEPRAZOLE [Concomitant]
  9. FORTEO [Suspect]
  10. GABAPENTIN [Concomitant]
  11. ACETAMINOPHEN AND HYDROCODONE BITARTRATE [Concomitant]
  12. ASPIRIN LOW [Concomitant]

REACTIONS (3)
  - FALL [None]
  - MOVEMENT DISORDER [None]
  - NERVE INJURY [None]
